FAERS Safety Report 4892686-2 (Version None)
Quarter: 2006Q1

REPORT INFORMATION
  Report Type: 
  Country: None (occurrence: None)
  Receive Date: 20060125
  Receipt Date: 20060125
  Transmission Date: 20060701
  Serious: Yes (Hospitalization)
  Sender: FDA-Public Use
  Company Number: None

PATIENT
  Age: 66 Year
  Sex: Male
  Weight: 71 kg

DRUGS (14)
  1. TACROLIMUS [Suspect]
     Indication: IMMUNOSUPPRESSION
     Dosage: 1 - 1.5 MG PO BID
     Route: 048
     Dates: start: 20050723, end: 20050728
  2. ENALAPRIL [Concomitant]
  3. PREDNISONE [Concomitant]
  4. IRON [Concomitant]
  5. BACTRIM [Concomitant]
  6. SIMVASTATIN [Concomitant]
  7. CACO3 [Concomitant]
  8. INSULIN [Concomitant]
  9. FOLIC ACID [Concomitant]
  10. VALGANCICLOVIR [Concomitant]
  11. DOCUSATE [Concomitant]
  12. BISACODYL [Concomitant]
  13. RANITIDINE [Concomitant]
  14. FUROSEMIDE [Concomitant]

REACTIONS (2)
  - BLOOD CREATININE INCREASED [None]
  - NEPHROPATHY TOXIC [None]
